FAERS Safety Report 10140632 (Version 1)
Quarter: 2014Q2

REPORT INFORMATION
  Report Type: Report from Study
  Country: US (occurrence: US)
  Receive Date: 20140429
  Receipt Date: 20140429
  Transmission Date: 20141212
  Serious: Yes (Hospitalization)
  Sender: FDA-Public Use
  Company Number: US-EISAI INC-E7389-05016-CLI-US

PATIENT
  Age: 53 Year
  Sex: Female
  Weight: 74.8 kg

DRUGS (2)
  1. ERIBULIN [Suspect]
     Indication: BREAST CANCER METASTATIC
     Dosage: 1.4 MG/M2
     Route: 041
     Dates: start: 20140129, end: 20140129
  2. POL6326 [Suspect]
     Indication: BREAST CANCER METASTATIC
     Dosage: 1.0 MG/KG
     Route: 041
     Dates: start: 20140128, end: 20140130

REACTIONS (4)
  - Colitis [Recovering/Resolving]
  - Febrile neutropenia [Recovering/Resolving]
  - Myalgia [Unknown]
  - Viral upper respiratory tract infection [Recovering/Resolving]
